FAERS Safety Report 5832710-3 (Version None)
Quarter: 2008Q3

REPORT INFORMATION
  Report Type: 
  Country: None (occurrence: None)
  Receive Date: 20080804
  Receipt Date: 20080728
  Transmission Date: 20090109
  Serious: Yes (Disabling)
  Sender: FDA-Public Use
  Company Number: PHRM2008FR00990

PATIENT
  Sex: Female

DRUGS (2)
  1. COTAREG [Suspect]
     Indication: HYPERTENSION
     Dosage: 160/12.5 MG; 1 DF, QD
     Route: 048
     Dates: start: 20041001, end: 20080201
  2. ATENOLOL [Suspect]
     Indication: HYPERTENSION
     Dosage: UNK
     Dates: start: 20030701, end: 20080201

REACTIONS (1)
  - AGEUSIA [None]
